FAERS Safety Report 9591188 (Version 1)
Quarter: 2013Q4

REPORT INFORMATION
  Report Type: Spontaneous
  Country: US (occurrence: US)
  Receive Date: 20131003
  Receipt Date: 20131003
  Transmission Date: 20140711
  Serious: No
  Sender: FDA-Public Use
  Company Number: US-AMGEN-USASP2012071753

PATIENT
  Sex: Male

DRUGS (7)
  1. ENBREL [Suspect]
     Indication: ANKYLOSING SPONDYLITIS
     Dosage: 50 MG, QWK
     Route: 058
  2. INDOMETHACIN                       /00003801/ [Concomitant]
     Dosage: 75 MG CR, UNK
  3. FOLIC ACID [Concomitant]
     Dosage: UNK
  4. PRAVASTATIN [Concomitant]
     Dosage: 10 MG, UNK
  5. AMBIEN [Concomitant]
     Dosage: 5 MG, UNK
  6. NIACIN [Concomitant]
     Dosage: 125 MG ER, UNK
  7. FISH OIL [Concomitant]
     Dosage: UNK

REACTIONS (1)
  - Drug effect incomplete [Unknown]
